FAERS Safety Report 15199398 (Version 1)
Quarter: 2018Q3

REPORT INFORMATION
  Report Type: Spontaneous
  Country: US (occurrence: US)
  Receive Date: 20180627
  Receipt Date: 20180627
  Transmission Date: 20181010
  Serious: Yes (Hospitalization)
  Sender: FDA-Public Use
  Company Number: None

PATIENT
  Age: 3 Year
  Sex: Female
  Weight: 11.5 kg

DRUGS (13)
  1. ONCASPAR [Suspect]
     Active Substance: PEGASPARGASE
     Dates: end: 20180317
  2. VANCOMYCIN [Concomitant]
     Active Substance: VANCOMYCIN
  3. VORICONAZOLE. [Concomitant]
     Active Substance: VORICONAZOLE
  4. METHOTREXATE. [Suspect]
     Active Substance: METHOTREXATE
     Dates: end: 20180411
  5. FLUCONAZOLE. [Concomitant]
     Active Substance: FLUCONAZOLE
  6. MEROPENEM. [Concomitant]
     Active Substance: MEROPENEM
  7. CYTARABINE. [Suspect]
     Active Substance: CYTARABINE
     Dates: end: 20180413
  8. ALLOPURINOL. [Concomitant]
     Active Substance: ALLOPURINOL
  9. VINCRISTINE SULFATE. [Suspect]
     Active Substance: VINCRISTINE SULFATE
     Dates: end: 20180416
  10. ACYCLOVIR. [Concomitant]
     Active Substance: ACYCLOVIR
  11. LEVOFLOXACIN. [Concomitant]
     Active Substance: LEVOFLOXACIN
  12. DAUNORUBICIN [Suspect]
     Active Substance: DAUNORUBICIN
     Dates: end: 20180328
  13. DEXAMETHASONE. [Suspect]
     Active Substance: DEXAMETHASONE
     Dates: end: 20180327

REACTIONS (11)
  - Herpes simplex viraemia [None]
  - Febrile neutropenia [None]
  - Mucosal inflammation [None]
  - Respiratory distress [None]
  - Diarrhoea [None]
  - Enterovirus infection [None]
  - Pyelonephritis [None]
  - Candida infection [None]
  - Tachycardia [None]
  - Rash erythematous [None]
  - Pulmonary oedema [None]

NARRATIVE: CASE EVENT DATE: 20180618
